FAERS Safety Report 14484959 (Version 1)
Quarter: 2018Q1

REPORT INFORMATION
  Report Type: Spontaneous
  Country: AU (occurrence: AU)
  Receive Date: 20180205
  Receipt Date: 20180205
  Transmission Date: 20180509
  Serious: Yes (Other)
  Sender: FDA-Public Use
  Company Number: AU-TEVA-2018-AU-856425

PATIENT
  Age: 62 Year
  Sex: Female

DRUGS (3)
  1. NILOTINIB [Suspect]
     Active Substance: NILOTINIB
     Route: 065
  2. DASATINIB. [Suspect]
     Active Substance: DASATINIB
     Route: 065
  3. IMATINIB [Suspect]
     Active Substance: IMATINIB
     Route: 065

REACTIONS (3)
  - Drug ineffective [Unknown]
  - Bone marrow failure [Unknown]
  - Polymerase chain reaction positive [Unknown]
